FAERS Safety Report 21629914 (Version 2)
Quarter: 2022Q4

REPORT INFORMATION
  Report Type: Report from Study
  Country: US (occurrence: US)
  Receive Date: 20221122
  Receipt Date: 20221124
  Transmission Date: 20230112
  Serious: No
  Sender: FDA-Public Use
  Company Number: US-002147023-NVSC2022US263007

PATIENT
  Sex: Female

DRUGS (1)
  1. KESIMPTA [Suspect]
     Active Substance: OFATUMUMAB
     Indication: Product used for unknown indication
     Dosage: UNK
     Route: 065

REACTIONS (7)
  - Myalgia [Unknown]
  - Nausea [Unknown]
  - Dizziness [Unknown]
  - Tremor [Unknown]
  - Dry mouth [Unknown]
  - Pyrexia [Unknown]
  - Headache [Unknown]
